FAERS Safety Report 13726625 (Version 1)
Quarter: 2017Q3

REPORT INFORMATION
  Report Type: Spontaneous
  Country: US (occurrence: US)
  Receive Date: 20170707
  Receipt Date: 20170707
  Transmission Date: 20171127
  Serious: Yes (Hospitalization)
  Sender: FDA-Public Use
  Company Number: None

PATIENT
  Age: 63 Year
  Sex: Female

DRUGS (6)
  1. FLECAINIDE [Concomitant]
     Active Substance: FLECAINIDE
  2. DIAZEPAM. [Concomitant]
     Active Substance: DIAZEPAM
  3. LOSARTAN POT [Concomitant]
     Active Substance: LOSARTAN POTASSIUM
  4. PREDNISONE. [Concomitant]
     Active Substance: PREDNISONE
  5. TASIGNA [Suspect]
     Active Substance: NILOTINIB
     Indication: CARCINOID TUMOUR
     Route: 048
     Dates: start: 20090302
  6. HYDROCHLOROTM [Concomitant]

REACTIONS (4)
  - Cerebrovascular accident [None]
  - Stress [None]
  - Eye pain [None]
  - Pain [None]

NARRATIVE: CASE EVENT DATE: 201604
